FAERS Safety Report 20065672 (Version 3)
Quarter: 2022Q3

REPORT INFORMATION
  Report Type: Report from Study
  Country: EG (occurrence: EG)
  Receive Date: 20211113
  Receipt Date: 20220916
  Transmission Date: 20221027
  Serious: Yes (Other)
  Sender: FDA-Public Use
  Company Number: EG-NOVARTISPH-NVSC2021EG251088

PATIENT
  Age: 42 Year
  Sex: Female

DRUGS (7)
  1. COSENTYX [Suspect]
     Active Substance: SECUKINUMAB
     Indication: Rheumatoid arthritis
     Dosage: 150 MG, QMO (EVERY 15 DAYS)
     Route: 058
     Dates: start: 20210914
  2. COSENTYX [Suspect]
     Active Substance: SECUKINUMAB
     Dosage: 150 MG ( 2 COSENTYX PENS)
     Route: 058
  3. COSENTYX [Suspect]
     Active Substance: SECUKINUMAB
     Dosage: 150 MG, QMO (1 PREFILLED PEN)
     Route: 065
  4. VITAMIN D [Concomitant]
     Active Substance: VITAMIN D NOS
     Indication: Dizziness
     Dosage: UNK UNK, QD
     Route: 065
  5. ZINC [Concomitant]
     Active Substance: ZINC
     Indication: Dizziness
     Dosage: ONCE DAILY (OCCASSIONALLY)
     Route: 065
  6. CALCIUM [Concomitant]
     Active Substance: CALCIUM
     Indication: Dizziness
     Dosage: UNK, QOD
     Route: 065
  7. DANTROLAX [Concomitant]
     Indication: Back pain
     Dosage: UNK THE PATIENT TAKES THE MEDICATION OCCASIONALLY ONCE IN THE MORNING
     Route: 065

REACTIONS (27)
  - Immunosuppression [Unknown]
  - Thrombosis [Not Recovered/Not Resolved]
  - Pustule [Not Recovered/Not Resolved]
  - Pain [Recovering/Resolving]
  - Hypersensitivity [Recovered/Resolved]
  - Pruritus [Recovered/Resolved]
  - Contusion [Recovered/Resolved]
  - Abdominal pain upper [Unknown]
  - Nausea [Unknown]
  - Vomiting [Unknown]
  - Inflammation [Unknown]
  - Dysphagia [Recovering/Resolving]
  - Burning sensation [Recovering/Resolving]
  - Cough [Recovering/Resolving]
  - Productive cough [Recovering/Resolving]
  - Dysphonia [Recovering/Resolving]
  - Speech disorder [Recovering/Resolving]
  - Pyrexia [Recovered/Resolved]
  - Nasopharyngitis [Recovered/Resolved]
  - Oropharyngeal pain [Not Recovered/Not Resolved]
  - Headache [Not Recovered/Not Resolved]
  - Sinusitis [Not Recovered/Not Resolved]
  - Pain in extremity [Unknown]
  - Back pain [Unknown]
  - Neck pain [Unknown]
  - Bone pain [Unknown]
  - Product use in unapproved indication [Unknown]

NARRATIVE: CASE EVENT DATE: 20210930
